FAERS Safety Report 9176837 (Version 2)
Quarter: 2014Q1

REPORT INFORMATION
  Report Type: Report from Study
  Country: CA (occurrence: CA)
  Receive Date: 20130321
  Receipt Date: 20140113
  Transmission Date: 20141002
  Serious: Yes (Other)
  Sender: FDA-Public Use
  Company Number: PHHY2011CA110968

PATIENT
  Age: 68 Year
  Sex: Male

DRUGS (1)
  1. SANDOSTATIN LAR [Suspect]
     Indication: CARCINOID TUMOUR
     Dosage: 60 MG, QMO
     Route: 030
     Dates: start: 20091027

REACTIONS (6)
  - Hand fracture [Unknown]
  - Back pain [Unknown]
  - Injection site mass [Unknown]
  - Contusion [Unknown]
  - Blood pressure systolic increased [Unknown]
  - Heart rate decreased [Unknown]
